FAERS Safety Report 16129829 (Version 1)
Quarter: 2019Q1

REPORT INFORMATION
  Report Type: Spontaneous
  Country: US (occurrence: US)
  Receive Date: 20190328
  Receipt Date: 20190328
  Transmission Date: 20190418
  Serious: Yes (Other)
  Sender: FDA-Public Use
  Company Number: US-SA-2019SA081799

PATIENT
  Age: 80 Year
  Sex: Female

DRUGS (3)
  1. SUDAFED [GUAIFENESIN;PSEUDOEPHEDRINE HYDROCHLORIDE] [Concomitant]
     Active Substance: GUAIFENESIN\PSEUDOEPHEDRINE HYDROCHLORIDE
  2. NORCO [Concomitant]
     Active Substance: ACETAMINOPHEN\HYDROCODONE BITARTRATE
  3. ALLEGRA D-12 HOUR [Suspect]
     Active Substance: FEXOFENADINE HYDROCHLORIDE\PSEUDOEPHEDRINE HYDROCHLORIDE
     Dosage: 2 DF, QD
     Route: 048

REACTIONS (4)
  - Insomnia [Unknown]
  - Vomiting [Unknown]
  - Cough [Unknown]
  - Drug dependence [Unknown]
